FAERS Safety Report 19167788 (Version 1)
Quarter: 2021Q2

REPORT INFORMATION
  Report Type: Spontaneous
  Country: US (occurrence: US)
  Receive Date: 20210422
  Receipt Date: 20210422
  Transmission Date: 20210717
  Serious: No
  Sender: FDA-Public Use
  Company Number: US-ASTRAZENECA-2021A249076

PATIENT
  Sex: Male
  Weight: 88.5 kg

DRUGS (2)
  1. BYDUREON BCISE [Suspect]
     Active Substance: EXENATIDE
     Indication: TYPE 2 DIABETES MELLITUS
     Route: 065
  2. BYDUREON [Suspect]
     Active Substance: EXENATIDE
     Indication: TYPE 2 DIABETES MELLITUS
     Route: 065

REACTIONS (6)
  - Injection site mass [Unknown]
  - Injection site haemorrhage [Unknown]
  - Scar [Unknown]
  - Injection site pain [Unknown]
  - Intentional device misuse [Unknown]
  - Wrong technique in device usage process [Unknown]
